FAERS Safety Report 4842581-X (Version None)
Quarter: 2005Q4

REPORT INFORMATION
  Report Type: 
  Country: None (occurrence: None)
  Receive Date: 20051201
  Receipt Date: 20051024
  Transmission Date: 20060501
  Serious: Yes (Death, Life-Threatening, Hospitalization)
  Sender: FDA-Public Use
  Company Number: CA-GLAXOSMITHKLINE-A0532382E

PATIENT
  Age: 33 Year
  Sex: Male

DRUGS (3)
  1. ATOVAQUONE [Suspect]
     Indication: ANTIBIOTIC PROPHYLAXIS
     Dosage: 1500MG TWICE PER DAY
     Route: 048
     Dates: start: 20050928, end: 20051017
  2. SEPTRA SS [Suspect]
     Indication: ANTIBIOTIC PROPHYLAXIS
     Dosage: 1TAB PER DAY
     Route: 048
     Dates: start: 20040927, end: 20050928
  3. HYDROCHLOROTHIAZIDE [Suspect]
     Indication: OEDEMA
     Route: 048
     Dates: start: 20050921, end: 20050928

REACTIONS (3)
  - ASTHENIA [None]
  - RASH MACULAR [None]
  - STEVENS-JOHNSON SYNDROME [None]
